FAERS Safety Report 11578403 (Version 1)
Quarter: 2015Q3

REPORT INFORMATION
  Report Type: Spontaneous
  Country: SN (occurrence: SN)
  Receive Date: 20150930
  Receipt Date: 20150930
  Transmission Date: 20151125
  Serious: Yes (Death, Hospitalization, Other)
  Sender: FDA-Public Use
  Company Number: SN-JUBILANT CADISTA PHARMACEUTICALS-2015JUB00299

PATIENT
  Age: 45 Year
  Sex: Female

DRUGS (2)
  1. DILTIAZEM [Concomitant]
     Active Substance: DILTIAZEM
     Dosage: 60 MG, 1X/DAY
     Route: 065
     Dates: start: 2011
  2. PREDNISONE. [Suspect]
     Active Substance: PREDNISONE
     Dosage: 40 MG, 1X/DAY
     Route: 065
     Dates: start: 2011

REACTIONS (4)
  - Cardiac failure congestive [Unknown]
  - Retinopathy hypertensive [Unknown]
  - Malignant hypertension [Recovered/Resolved]
  - Scleroderma renal crisis [Fatal]
